FAERS Safety Report 6192946-1 (Version None)
Quarter: 2009Q2

REPORT INFORMATION
  Report Type: 
  Country: None (occurrence: None)
  Receive Date: 20090518
  Receipt Date: 20090506
  Transmission Date: 20091009
  Serious: Yes (Hospitalization, Other)
  Sender: FDA-Public Use
  Company Number: FI-BIOGENIDEC-2008BI006708

PATIENT
  Age: 53 Year
  Sex: Female

DRUGS (3)
  1. AVONEX [Suspect]
     Indication: MULTIPLE SCLEROSIS
     Route: 030
     Dates: start: 20020101, end: 20080301
  2. AVONEX [Suspect]
     Route: 030
     Dates: start: 20081001, end: 20090401
  3. FEMOSTON CONTI [Concomitant]
     Indication: HORMONE REPLACEMENT THERAPY

REACTIONS (9)
  - CHOLECYSTITIS INFECTIVE [None]
  - GALLBLADDER PAIN [None]
  - HYPOAESTHESIA [None]
  - INFLUENZA LIKE ILLNESS [None]
  - LOSS OF CONTROL OF LEGS [None]
  - MALAISE [None]
  - MUSCLE SPASTICITY [None]
  - THIRST [None]
  - TOOTH INFECTION [None]
